FAERS Safety Report 12743711 (Version 1)
Quarter: 2016Q3

REPORT INFORMATION
  Report Type: Spontaneous
  Country: CH (occurrence: CH)
  Receive Date: 20160914
  Receipt Date: 20160914
  Transmission Date: 20161109
  Serious: Yes (Death, Hospitalization)
  Sender: FDA-Public Use
  Company Number: CH-PFIZER INC-2016429054

PATIENT
  Age: 75 Year
  Sex: Female

DRUGS (1)
  1. METHOTREXATE SODIUM. [Suspect]
     Active Substance: METHOTREXATE SODIUM
     Indication: RHEUMATOID ARTHRITIS
     Dosage: 10 MG, 1X/DAY
     Route: 048
     Dates: start: 2016, end: 20160806

REACTIONS (8)
  - Inappropriate schedule of drug administration [Fatal]
  - Sepsis [Fatal]
  - Pancytopenia [Not Recovered/Not Resolved]
  - Accidental overdose [Fatal]
  - Mucosal inflammation [Not Recovered/Not Resolved]
  - Pneumonia [Fatal]
  - Agranulocytosis [Recovering/Resolving]
  - Toxicity to various agents [Unknown]

NARRATIVE: CASE EVENT DATE: 2016
